FAERS Safety Report 14885467 (Version 2)
Quarter: 2018Q4

REPORT INFORMATION
  Report Type: Spontaneous
  Country: US (occurrence: US)
  Receive Date: 20180511
  Receipt Date: 20181016
  Transmission Date: 20190204
  Serious: No
  Sender: FDA-Public Use
  Company Number: US-AMGEN-USASP2018032581

PATIENT
  Age: 21 Year
  Sex: Female

DRUGS (5)
  1. HEPARIN [Concomitant]
     Active Substance: HEPARIN SODIUM
     Dosage: 5000 UNIT, UNK
     Route: 040
  2. SENSIPAR [Suspect]
     Active Substance: CINACALCET HYDROCHLORIDE
     Indication: HYPERPARATHYROIDISM
     Dosage: 30 MG, QD
     Route: 065
     Dates: start: 201801, end: 20180223
  3. ZEMPLAR [Concomitant]
     Active Substance: PARICALCITOL
     Dosage: 3 MUG, UNK
  4. LESTARA [Concomitant]
     Dosage: 60 MUG, Q3WK
  5. PARSABIV [Suspect]
     Active Substance: ETELCALCETIDE HYDROCHLORIDE
     Indication: HYPERPARATHYROIDISM
     Dosage: 5 MG, UNK
     Route: 042
     Dates: start: 20180305, end: 20180306

REACTIONS (2)
  - Rash generalised [Unknown]
  - Abdominal discomfort [Recovered/Resolved]

NARRATIVE: CASE EVENT DATE: 2018
